FAERS Safety Report 25611806 (Version 1)
Quarter: 2025Q3

REPORT INFORMATION
  Report Type: Spontaneous
  Country: GB (occurrence: GB)
  Receive Date: 20250728
  Receipt Date: 20250728
  Transmission Date: 20251021
  Serious: Yes (Other)
  Sender: ALEXION PHARMACEUTICALS
  Company Number: GB-MHRA-EMIS-6081-7a6e0e18-09c9-4325-b285-e39ebaa7c5ec

PATIENT
  Age: 84 Year
  Sex: Male
  Weight: 96 kg

DRUGS (1)
  1. DAPAGLIFLOZIN [Suspect]
     Active Substance: DAPAGLIFLOZIN
     Dosage: 1 DOSAGE FORM, QD
     Route: 065
     Dates: start: 20250305, end: 20250430

REACTIONS (3)
  - Genital erythema [Unknown]
  - Balanoposthitis [Unknown]
  - Fournier^s gangrene [Unknown]

NARRATIVE: CASE EVENT DATE: 20250402
